FAERS Safety Report 12610961 (Version 11)
Quarter: 2017Q4

REPORT INFORMATION
  Report Type: Report from Study
  Country: IQ (occurrence: IQ)
  Receive Date: 20160801
  Receipt Date: 20171116
  Transmission Date: 20180320
  Serious: Yes (Other)
  Sender: FDA-Public Use
  Company Number: PHHY2016IQ073080

PATIENT
  Sex: Female

DRUGS (2)
  1. GLIVEC [Suspect]
     Active Substance: IMATINIB MESYLATE
     Indication: PRODUCT USED FOR UNKNOWN INDICATION
     Dosage: 400 MG, QD
     Route: 048
     Dates: start: 2013
  2. IRON [Concomitant]
     Active Substance: IRON
     Indication: PRODUCT USED FOR UNKNOWN INDICATION
     Route: 065

REACTIONS (40)
  - Pelvic infection [Recovering/Resolving]
  - Angina pectoris [Unknown]
  - Urinary tract infection [Not Recovered/Not Resolved]
  - Bladder pain [Not Recovered/Not Resolved]
  - Haematuria [Not Recovered/Not Resolved]
  - Lymphadenitis [Unknown]
  - Blood calcium decreased [Not Recovered/Not Resolved]
  - Eyelid oedema [Not Recovered/Not Resolved]
  - Vomiting [Unknown]
  - Nephrolithiasis [Recovering/Resolving]
  - Gastrointestinal disorder [Unknown]
  - Hot flush [Not Recovered/Not Resolved]
  - Abdominal pain upper [Not Recovered/Not Resolved]
  - Haematuria [Recovered/Resolved]
  - Leukopenia [Recovered/Resolved]
  - Skin discolouration [Recovering/Resolving]
  - Vaginal infection [Not Recovered/Not Resolved]
  - Dysuria [Recovering/Resolving]
  - Neuralgia [Unknown]
  - Flank pain [Recovering/Resolving]
  - Pain [Unknown]
  - Haemoglobin decreased [Not Recovered/Not Resolved]
  - Abdominal distension [Not Recovered/Not Resolved]
  - Tooth disorder [Not Recovered/Not Resolved]
  - Menorrhagia [Unknown]
  - Leukopenia [Not Recovered/Not Resolved]
  - Fatigue [Not Recovered/Not Resolved]
  - Weight increased [Not Recovered/Not Resolved]
  - Dizziness [Not Recovered/Not Resolved]
  - Leukocytosis [Not Recovered/Not Resolved]
  - Malaise [Unknown]
  - Decreased immune responsiveness [Unknown]
  - Anaemia [Not Recovered/Not Resolved]
  - Bone pain [Not Recovered/Not Resolved]
  - Chest pain [Unknown]
  - Face oedema [Not Recovered/Not Resolved]
  - Protein total decreased [Not Recovered/Not Resolved]
  - Yellow skin [Unknown]
  - Nausea [Not Recovered/Not Resolved]
  - Generalised oedema [Not Recovered/Not Resolved]

NARRATIVE: CASE EVENT DATE: 201606
